FAERS Safety Report 7299513-7 (Version None)
Quarter: 2011Q1

REPORT INFORMATION
  Report Type: 
  Country: None (occurrence: None)
  Receive Date: 20110217
  Receipt Date: 20110207
  Transmission Date: 20110831
  Serious: Yes (Hospitalization)
  Sender: FDA-Public Use
  Company Number: NL-ELI_LILLY_AND_COMPANY-NL201012005693

PATIENT
  Sex: Female

DRUGS (6)
  1. FOLIC ACID [Concomitant]
  2. SELOKEEN [Concomitant]
  3. RADIATION [Suspect]
     Indication: NON-SMALL CELL LUNG CANCER STAGE III
     Dates: start: 20101220
  4. VITAMIN B-12 [Concomitant]
  5. CISPLATIN [Suspect]
     Indication: NON-SMALL CELL LUNG CANCER STAGE III
     Dosage: 140 MG, EVERY 3 WEEKS
     Route: 042
     Dates: start: 20101220
  6. PEMETREXED [Suspect]
     Indication: NON-SMALL CELL LUNG CANCER STAGE III
     Dosage: 900 MG, EVERY 3 WEEKS
     Route: 042
     Dates: start: 20101220

REACTIONS (1)
  - ORTHOSTATIC HYPOTENSION [None]
